FAERS Safety Report 7319477-7 (Version None)
Quarter: 2011Q1

REPORT INFORMATION
  Report Type: 
  Country: None (occurrence: None)
  Receive Date: 20110228
  Receipt Date: 20100408
  Transmission Date: 20110831
  Serious: Yes (Other)
  Sender: FDA-Public Use
  Company Number: A0854163A

PATIENT
  Age: 16 Year
  Sex: Female

DRUGS (2)
  1. KEPPRA [Concomitant]
  2. LAMICTAL [Suspect]
     Indication: EPILEPSY
     Dosage: 100MG TWICE PER DAY
     Route: 048
     Dates: end: 20100401

REACTIONS (1)
  - RASH [None]
